FAERS Safety Report 8834572 (Version 1)
Quarter: 2012Q4

REPORT INFORMATION
  Report Type: Report from Study
  Country: FR (occurrence: FR)
  Receive Date: 20121010
  Receipt Date: 20121010
  Transmission Date: 20130627
  Serious: Yes (Other)
  Sender: FDA-Public Use
  Company Number: FR-UCBSA-068313

PATIENT
  Age: 60 Year
  Sex: Female
  Weight: 65 kg

DRUGS (2)
  1. CIMZIA [Suspect]
     Indication: RHEUMATOID ARTHRITIS
     Dosage: 400 MG EVERY 2 WEEKS AND THEN 200 MG EVERY 2 WEEKS
     Route: 058
     Dates: start: 20120313, end: 20120526
  2. VOLTAREN [Concomitant]
     Indication: RHEUMATOID ARTHRITIS
     Dosage: DAILY DOSE: 50 MG
     Route: 048
     Dates: start: 1990

REACTIONS (1)
  - Herpes zoster [Recovered/Resolved]
